FAERS Safety Report 7128229-2 (Version None)
Quarter: 2010Q4

REPORT INFORMATION
  Report Type: 
  Country: None (occurrence: None)
  Receive Date: 20101130
  Receipt Date: 20101122
  Transmission Date: 20110411
  Serious: Yes (Death)
  Sender: FDA-Public Use
  Company Number: US-ROXANE LABORATORIES, INC.-2007-DE-01925GD

PATIENT
  Age: 39 Year
  Sex: Female

DRUGS (10)
  1. OXAZEPAM [Suspect]
  2. PARACETAMOL [Suspect]
  3. DIAZEPAM [Suspect]
  4. LORAZEPAM [Suspect]
  5. DIPHENHYDRAMINE HCL [Suspect]
  6. CLONAZEPAM [Suspect]
  7. ATROPINE [Suspect]
  8. TOPIRAMATE [Suspect]
  9. CIPROFLOXACIN [Suspect]
  10. CHLORAL HYDRATE [Suspect]

REACTIONS (4)
  - DRUG ABUSE [None]
  - DRUG TOXICITY [None]
  - INFLUENZA [None]
  - SEPSIS [None]
